FAERS Safety Report 17103703 (Version 1)
Quarter: 2019Q4

REPORT INFORMATION
  Report Type: Spontaneous
  Country: US (occurrence: US)
  Receive Date: 20191107
  Receipt Date: 20191107
  Transmission Date: 20200122
  Serious: No
  Sender: FDA-Public Use
  Company Number: None

PATIENT
  Sex: Male

DRUGS (2)
  1. NEXAVAR [Suspect]
     Active Substance: SORAFENIB
     Indication: BONE NEOPLASM
     Route: 048
     Dates: start: 20190830
  2. NEXAVAR [Suspect]
     Active Substance: SORAFENIB
     Indication: NEOPLASM SKIN
     Route: 048
     Dates: start: 20190830

REACTIONS (3)
  - Sensitive skin [None]
  - Skin burning sensation [None]
  - Acne [None]
